FAERS Safety Report 24770758 (Version 1)
Quarter: 2024Q4

REPORT INFORMATION
  Report Type: Spontaneous
  Country: GB (occurrence: GB)
  Receive Date: 20241224
  Receipt Date: 20241224
  Transmission Date: 20250114
  Serious: Yes (Hospitalization, Other)
  Sender: ACCORD
  Company Number: None

PATIENT
  Age: 76 Year
  Sex: Male

DRUGS (15)
  1. SIMVASTATIN [Suspect]
     Active Substance: SIMVASTATIN
     Indication: Product used for unknown indication
  2. DIAZEPAM [Concomitant]
     Active Substance: DIAZEPAM
     Dosage: DIAZEPAM 2 MG TABLETS
  3. CODEINE [Concomitant]
     Active Substance: CODEINE
     Dosage: 15 MG TABLETS TAKE 1-2 EVERY 6 HRS PRN IF NO RELIEF WITH PARACETAMOL 100 TABLET
  4. Ciprofloxacin, Dexamethasone [Concomitant]
  5. DECAPEPTYL [Concomitant]
     Dosage: 22.5 MG POWDER
  6. DERMOL [Concomitant]
     Active Substance: BENZALKONIUM CHLORIDE\CHLORHEXIDINE HYDROCHLORIDE\ISOPROPYL MYRISTATE\PARAFFIN
     Dosage: 500 LOTION APPLY TO SKIN OR USE AS A SOAP SUBSTITUTE - PRN
  7. VITAMIN D NOS [Concomitant]
     Active Substance: CHOLECALCIFEROL\ERGOCALCIFEROL
  8. DEXAMETHASONE [Concomitant]
     Active Substance: DEXAMETHASONE
     Dosage: 500 MICROGRAM TABLETS TO BE TAKEN AS DIRECTED- TAKES 1 OM DOSE INCREASED BY INPAT ONCOL
  9. LANSOPRAZOLE [Concomitant]
     Active Substance: LANSOPRAZOLE
     Dosage: 30 MG GASTRO-RESISTANT CAPSULES ONE TO BE TAKEN EACH MORNING
  10. SIMVASTATIN [Concomitant]
     Active Substance: SIMVASTATIN
     Dosage: 20 MG TABLETS ONE TO BE TAKEN AT NIGHT
  11. TRIMOVATE [Concomitant]
     Active Substance: CLOBETASONE BUTYRATE\NYSTATIN\OXYTETRACYCLINE CALCIUM
     Dosage: APPLY BD PRN- PRN
  12. CYCLIZINE [Concomitant]
     Active Substance: CYCLIZINE
     Dosage: 50 MG TABLETS ONE TO BE TAKEN UP TO THREE TIMES A DAY FOR NAUSEA 42 TABLET- TAKES TDS PRN
  13. AZATHIOPRINE [Concomitant]
     Active Substance: AZATHIOPRINE
     Dosage: 25 MG 1OM- HAS NOT BEEN USING RECENTLY DUE TO ILLNESS
  14. MINERAL OIL\PETROLATUM\WAX, EMULSIFYING [Concomitant]
     Active Substance: MINERAL OIL\PETROLATUM\WAX, EMULSIFYING
     Dosage: AS NEEDED- PRN
  15. ALLOPURINOL [Concomitant]
     Active Substance: ALLOPURINOL
     Dosage: 100 MG TABLETS ONE TO BE TAKEN DAILY

REACTIONS (1)
  - Neck pain [Unknown]
